FAERS Safety Report 24667618 (Version 1)
Quarter: 2024Q4

REPORT INFORMATION
  Report Type: Spontaneous
  Country: RO (occurrence: RO)
  Receive Date: 20241126
  Receipt Date: 20241126
  Transmission Date: 20250115
  Serious: Yes (Hospitalization)
  Sender: ABBVIE
  Company Number: RO-ABBVIE-6009829

PATIENT
  Age: 35 Year
  Sex: Female
  Weight: 48 kg

DRUGS (2)
  1. VISTABEL [Suspect]
     Active Substance: BOTULINUM TOXIN TYPE A
     Indication: Skin wrinkling
     Dosage: TIME INTERVAL: AS NECESSARY: 4 ALLERGAN UNITS/0.1ML, POWDER FOR SOLUTI
     Route: 030
     Dates: start: 20240507, end: 20240507
  2. VISTABEL [Suspect]
     Active Substance: BOTULINUM TOXIN TYPE A
     Indication: Skin wrinkling
     Dosage: TIME INTERVAL: AS NECESSARY: 4 ALLERGAN UNITS/0.1ML, POWDER FOR SOLUTI
     Route: 030
     Dates: start: 20240507, end: 20240507

REACTIONS (61)
  - Dyskinesia [Unknown]
  - Foreign body sensation in eyes [Unknown]
  - Ear discomfort [Unknown]
  - Urinary tract infection [Unknown]
  - Photophobia [Unknown]
  - Paraesthesia [Unknown]
  - Muscle atrophy [Not Recovered/Not Resolved]
  - Bladder discomfort [Unknown]
  - Pyrexia [Unknown]
  - Dyspepsia [Unknown]
  - Nutritional supplement allergy [Unknown]
  - Muscle spasms [Unknown]
  - Oedema genital [Unknown]
  - Periorbital oedema [Recovered/Resolved]
  - Hypoaesthesia [Unknown]
  - Vision blurred [Unknown]
  - Gastrointestinal disorder [Unknown]
  - Fatigue [Unknown]
  - Swelling of eyelid [Not Recovered/Not Resolved]
  - Lymph node pain [Unknown]
  - Arthralgia [Unknown]
  - Nervousness [Unknown]
  - Papule [Unknown]
  - Anxiety [Unknown]
  - Insomnia [Unknown]
  - Asthenia [Unknown]
  - Muscle twitching [Not Recovered/Not Resolved]
  - Bartholinitis [Unknown]
  - Muscle atrophy [Unknown]
  - Alopecia [Not Recovered/Not Resolved]
  - Rash [Unknown]
  - Hair texture abnormal [Not Recovered/Not Resolved]
  - Vitreous floaters [Not Recovered/Not Resolved]
  - Skin burning sensation [Unknown]
  - Blepharospasm [Unknown]
  - Headache [Unknown]
  - Lymphadenopathy [Unknown]
  - Toothache [Unknown]
  - Joint swelling [Unknown]
  - Muscle twitching [Unknown]
  - Fatigue [Unknown]
  - Dry skin [Not Recovered/Not Resolved]
  - Hypersensitivity [Unknown]
  - Urinary incontinence [Not Recovered/Not Resolved]
  - Rash [Unknown]
  - Muscle spasms [Unknown]
  - Madarosis [Unknown]
  - Lymphatic disorder [Unknown]
  - Toxicity to various agents [Unknown]
  - Lacrimation decreased [Unknown]
  - Dry eye [Unknown]
  - Angioedema [Recovered/Resolved]
  - Blepharitis [Unknown]
  - Muscular weakness [Unknown]
  - Rash [Not Recovered/Not Resolved]
  - Condition aggravated [Unknown]
  - Muscle contractions involuntary [Not Recovered/Not Resolved]
  - Blepharospasm [Unknown]
  - Drug hypersensitivity [Unknown]
  - Photophobia [Unknown]
  - Genital pain [Unknown]

NARRATIVE: CASE EVENT DATE: 20240101
